FAERS Safety Report 19512712 (Version 2)
Quarter: 2023Q4

REPORT INFORMATION
  Report Type: Report from Study
  Country: AT (occurrence: AT)
  Receive Date: 20210709
  Receipt Date: 20231011
  Transmission Date: 20240110
  Serious: Yes (Hospitalization)
  Sender: FDA-Public Use
  Company Number: AT-CELLTRION HEALTHCARE HUNGARY KFT-2019AT028754

PATIENT
  Age: 54 Year
  Sex: Female
  Weight: 75 kg

DRUGS (90)
  1. VINORELBINE TARTRATE [Suspect]
     Active Substance: VINORELBINE TARTRATE
     Indication: HER2 positive breast cancer
     Dosage: ON 28/OCT/2019, THE PATIENT RECEIVED MOST RECENT DOSE OF ORAL VINORELBINE TARTRATE 50 MICROGRAM.
     Route: 048
     Dates: start: 20191011
  2. VINORELBINE TARTRATE [Suspect]
     Active Substance: VINORELBINE TARTRATE
     Route: 048
     Dates: start: 20191028
  3. NAVELBINE [Suspect]
     Active Substance: VINORELBINE TARTRATE
     Indication: HER2 positive breast cancer
     Dosage: ON 28/OCT/2019, THE PATIENT RECEIVED MOST RECENT DOSE OF ORAL NAVELBINE.
     Route: 048
     Dates: start: 20191011
  4. NAVELBINE [Suspect]
     Active Substance: VINORELBINE TARTRATE
     Indication: Breast cancer
     Route: 065
     Dates: start: 20191028
  5. VINORELBINE [Suspect]
     Active Substance: VINORELBINE TARTRATE
     Indication: HER2 positive breast cancer
     Dosage: ON 28/OCT/2019, THE PATIENT RECEIVED MOST RECENT DOSE OF ORAL VINORELBINE.
     Route: 048
     Dates: start: 20191011, end: 20191025
  6. VINORELBINE [Suspect]
     Active Substance: VINORELBINE TARTRATE
     Route: 048
     Dates: start: 20191028
  7. VINORELBINE [Suspect]
     Active Substance: VINORELBINE TARTRATE
     Dosage: ON 25/OCT/2019 AND 28/OCT/2019, THE PATIENT RECEIVED MOST RECENT DOSE OF ORAL VINORELBINE.
     Route: 048
     Dates: start: 20191011
  8. NERATINIB [Suspect]
     Active Substance: NERATINIB
     Indication: HER2 positive breast cancer
     Dosage: 1440 MG, QD
     Route: 048
     Dates: start: 20200119, end: 20200129
  9. NERATINIB [Suspect]
     Active Substance: NERATINIB
     Dosage: 1440 MG, QD
     Route: 048
     Dates: start: 20200108, end: 20200118
  10. NERATINIB [Suspect]
     Active Substance: NERATINIB
     Dosage: UNK
     Route: 065
  11. TAXOL [Suspect]
     Active Substance: PACLITAXEL
     Indication: Breast cancer
     Dosage: ON 09/APR/2018, THE PATIENT RECEIVED MOST RECENT DOSE OF IV PACLITAXEL.
     Route: 042
     Dates: start: 20180328
  12. TAXOL [Suspect]
     Active Substance: PACLITAXEL
     Indication: HER2 positive breast cancer
  13. METHOTREXATE [Suspect]
     Active Substance: METHOTREXATE
     Indication: HER2 positive breast cancer
     Dosage: ON 09/MAR/2020, THE PATIENT RECEIVED MOST RECENT DOSE OF ORAL METHOTREXATE 2.5 MG, EVERY 0.5 WEEK.
     Route: 048
     Dates: start: 20200219
  14. METHOTREXATE [Suspect]
     Active Substance: METHOTREXATE
     Route: 065
     Dates: start: 20200309
  15. CAPECITABINE [Suspect]
     Active Substance: CAPECITABINE
     Indication: HER2 positive breast cancer
     Dosage: 500 MG, OTHER
     Route: 048
     Dates: start: 20191219
  16. CAPECITABINE [Suspect]
     Active Substance: CAPECITABINE
     Dosage: 500 MG, OTHER
     Route: 048
     Dates: start: 20191126, end: 20191218
  17. ABRAXANE [Suspect]
     Active Substance: PACLITAXEL
     Indication: HER2 positive breast cancer
     Dosage: ON 08/MAY/2018, THE PATIENT RECEIVED MOST RECENT DOSE OF IV PACLITAXEL ALBUMIN. ON 16/JAN/2019, THE
     Route: 042
     Dates: start: 20180416
  18. ABRAXANE [Suspect]
     Active Substance: PACLITAXEL
     Indication: Breast cancer
     Route: 065
     Dates: start: 20190116
  19. ABRAXANE [Suspect]
     Active Substance: PACLITAXEL
     Route: 065
     Dates: start: 20180508
  20. ADO-TRASTUZUMAB EMTANSINE [Suspect]
     Active Substance: ADO-TRASTUZUMAB EMTANSINE
     Indication: HER2 positive breast cancer
     Dosage: ON 28/JUN/2019, THE PATIENT MOST RECENT DOSE OF IV TRASTUZUMAB EMTANSINE 230.4 MG; EVERY 3 WEEK. ON
     Route: 042
     Dates: start: 20190131, end: 20190517
  21. ADO-TRASTUZUMAB EMTANSINE [Suspect]
     Active Substance: ADO-TRASTUZUMAB EMTANSINE
     Dosage: 230.4 MG; EVERY 3 WEEK; DOSE ON 17/MAY/2019
     Route: 042
     Dates: start: 20190131
  22. ADO-TRASTUZUMAB EMTANSINE [Suspect]
     Active Substance: ADO-TRASTUZUMAB EMTANSINE
     Route: 042
     Dates: start: 20210228
  23. ADO-TRASTUZUMAB EMTANSINE [Suspect]
     Active Substance: ADO-TRASTUZUMAB EMTANSINE
     Route: 042
     Dates: start: 20200311
  24. ADO-TRASTUZUMAB EMTANSINE [Suspect]
     Active Substance: ADO-TRASTUZUMAB EMTANSINE
     Route: 042
     Dates: start: 20190517
  25. ADO-TRASTUZUMAB EMTANSINE [Suspect]
     Active Substance: ADO-TRASTUZUMAB EMTANSINE
     Route: 042
     Dates: start: 20190628
  26. PERTUZUMAB [Suspect]
     Active Substance: PERTUZUMAB
     Indication: HER2 positive breast cancer
     Route: 042
     Dates: start: 20181214, end: 20190109
  27. PERTUZUMAB [Suspect]
     Active Substance: PERTUZUMAB
     Dosage: ON 28/MAR/2018, THE PATIENT RECEIVED MOST RECENT DOSE OF IV PERTUZUMAB. ON 14/DEC/2018, THE PATIENT
     Route: 042
     Dates: start: 20180328
  28. PERTUZUMAB [Suspect]
     Active Substance: PERTUZUMAB
     Dosage: 420 MG EVERY 3 WEEKS
     Route: 042
     Dates: start: 20180423, end: 20180423
  29. PERTUZUMAB [Suspect]
     Active Substance: PERTUZUMAB
     Dosage: SOLUTION FOR INFUSION
     Route: 042
     Dates: start: 20191011
  30. PACLITAXEL [Suspect]
     Active Substance: PACLITAXEL
     Indication: HER2 positive breast cancer
     Dosage: ON 08/MAY/2018, THE PATIENT RECEIVED MOST RECENT DOSE OF IV PACLITAXEL ALBUMIN. ON 16/JAN/2019, THE
     Route: 042
     Dates: start: 20180416
  31. PACLITAXEL [Suspect]
     Active Substance: PACLITAXEL
     Route: 042
     Dates: start: 20180612, end: 20180618
  32. PACLITAXEL [Suspect]
     Active Substance: PACLITAXEL
     Route: 042
     Dates: start: 20180515, end: 20180515
  33. PACLITAXEL [Suspect]
     Active Substance: PACLITAXEL
     Route: 042
     Dates: start: 20181207, end: 20181221
  34. PACLITAXEL [Suspect]
     Active Substance: PACLITAXEL
     Route: 042
     Dates: start: 20180605, end: 20180605
  35. PACLITAXEL [Suspect]
     Active Substance: PACLITAXEL
     Route: 042
     Dates: start: 20190102, end: 20190102
  36. PACLITAXEL [Suspect]
     Active Substance: PACLITAXEL
     Route: 042
     Dates: start: 20190109, end: 20190109
  37. PACLITAXEL [Suspect]
     Active Substance: PACLITAXEL
     Route: 042
     Dates: start: 20180522, end: 20180529
  38. PACLITAXEL [Suspect]
     Active Substance: PACLITAXEL
     Route: 042
     Dates: start: 20180626, end: 20180718
  39. PACLITAXEL [Suspect]
     Active Substance: PACLITAXEL
     Route: 042
     Dates: start: 20190116, end: 20190116
  40. PACLITAXEL [Suspect]
     Active Substance: PACLITAXEL
     Route: 042
     Dates: start: 20181102, end: 20181123
  41. PACLITAXEL [Suspect]
     Active Substance: PACLITAXEL
     Route: 042
     Dates: start: 20180416, end: 20180508
  42. TRASTUZUMAB [Suspect]
     Active Substance: TRASTUZUMAB
     Indication: HER2 positive breast cancer
     Dosage: ON 23/NOV/2018, THE PATIENT RECEIVED MOST RECENT DOSE OF IV TRASTUZUMAB.
     Route: 041
     Dates: start: 20181102, end: 20181123
  43. TRASTUZUMAB [Suspect]
     Active Substance: TRASTUZUMAB
     Dosage: 384 MG EVERY 3 WEEKS
     Route: 042
     Dates: start: 20180515, end: 20180515
  44. TRASTUZUMAB [Suspect]
     Active Substance: TRASTUZUMAB
     Dosage: ON 09/JAN/2019, THE PATIENT RECEIVED MOST RECENT DOSE OF IV TRASTUZUMAB 378 MG EVERY 3 WEEKS
     Route: 041
     Dates: start: 20181214
  45. TRASTUZUMAB [Suspect]
     Active Substance: TRASTUZUMAB
     Dosage: ON 11/OCT/2019, THE PATIENT RECEIVED MOST RECENT DOSE OF IV TRASTUZUMAB.
     Route: 042
     Dates: start: 20180328, end: 20180328
  46. TRASTUZUMAB [Suspect]
     Active Substance: TRASTUZUMAB
     Route: 042
     Dates: start: 20180423, end: 20180423
  47. TRASTUZUMAB [Suspect]
     Active Substance: TRASTUZUMAB
     Route: 042
     Dates: start: 20191011, end: 20191025
  48. TRASTUZUMAB [Suspect]
     Active Substance: TRASTUZUMAB
     Dosage: ON 09/JAN/2019, THE PATIENT RECEIVED MOST RECENT DOSE OF IV TRASTUZUMAB 378 MG EVERY 3 WEEKS.
     Route: 041
     Dates: start: 20181123
  49. TRASTUZUMAB [Suspect]
     Active Substance: TRASTUZUMAB
     Dosage: ON 10/OCT/2018, THE PATIENT RECEIVED MOST RECENT DOSE OF IV TRASTUZUMAB 372 MG EVERY 3 WEEKS
     Route: 041
     Dates: start: 20180626
  50. TRASTUZUMAB [Suspect]
     Active Substance: TRASTUZUMAB
     Dosage: ON 11/OCT/2019, THE PATIENT RECEIVED MOST RECENT DOSE OF IV TRASTUZUMAB.
     Route: 041
     Dates: start: 20180328
  51. TRASTUZUMAB [Suspect]
     Active Substance: TRASTUZUMAB
     Dosage: ON 26/JUN/2018, THE PATIENT RECEIVED MOST RECENT DOSE OF IV TRASTUZUMAB 600 MG.
     Route: 041
     Dates: start: 20180328, end: 20180328
  52. TRASTUZUMAB [Suspect]
     Active Substance: TRASTUZUMAB
     Route: 041
     Dates: start: 20180626, end: 20181010
  53. TRASTUZUMAB [Suspect]
     Active Substance: TRASTUZUMAB
     Dosage: 500 MG, OTHER
     Route: 041
     Dates: start: 20191219
  54. TRASTUZUMAB [Suspect]
     Active Substance: TRASTUZUMAB
     Dosage: 500 MG, OTHER
     Route: 041
     Dates: start: 20191126, end: 20191218
  55. PACLITAXEL [Suspect]
     Active Substance: PACLITAXEL
     Indication: HER2 positive breast cancer
     Dosage: ON 09/APR/2018, THE PATIENT RECEIVED LAST DOSE OF IV PACLITAXEL.
     Route: 042
     Dates: start: 20180328
  56. PACLITAXEL [Suspect]
     Active Substance: PACLITAXEL
     Dosage: 172.67 MG, 1/WEEK
     Route: 042
     Dates: start: 20190102, end: 20190102
  57. PACLITAXEL [Suspect]
     Active Substance: PACLITAXEL
     Dosage: 171.51 MG, 1/WEEK
     Route: 042
     Dates: start: 20190109, end: 20190109
  58. PACLITAXEL [Suspect]
     Active Substance: PACLITAXEL
     Dosage: 177.17 MG, 1/WEEK
     Route: 042
     Dates: start: 20180612, end: 20180612
  59. PACLITAXEL [Suspect]
     Active Substance: PACLITAXEL
     Dosage: 171.51 MG, 1/WEEK
     Route: 042
     Dates: start: 20181207, end: 20181221
  60. PACLITAXEL [Suspect]
     Active Substance: PACLITAXEL
     Dosage: 172.67 MG, 1/WEEK
     Route: 042
     Dates: start: 20180605, end: 20180605
  61. PACLITAXEL [Suspect]
     Active Substance: PACLITAXEL
     Dosage: 170.35 MG, 1/WEEK
     Route: 042
     Dates: start: 20180626, end: 20180718
  62. PACLITAXEL [Suspect]
     Active Substance: PACLITAXEL
     Dosage: 171.51 MG, 1/WEEK
     Route: 042
     Dates: start: 20181102, end: 20181123
  63. PACLITAXEL [Suspect]
     Active Substance: PACLITAXEL
     Dosage: 147.76 MG, 1/WEEK
     Route: 042
     Dates: start: 20180522, end: 20180529
  64. PACLITAXEL [Suspect]
     Active Substance: PACLITAXEL
     Dosage: 172.67 MG, 1/WEEK
     Route: 042
     Dates: start: 20180515, end: 20180515
  65. PACLITAXEL [Suspect]
     Active Substance: PACLITAXEL
     Dosage: 177.17 MG, 1/WEEK
     Route: 042
     Dates: start: 20180416, end: 20180508
  66. PACLITAXEL [Suspect]
     Active Substance: PACLITAXEL
     Dosage: 172.67 MG, 1/WEEK
     Route: 042
     Dates: start: 20190116, end: 20190116
  67. PACLITAXEL [Suspect]
     Active Substance: PACLITAXEL
     Dosage: ON 09/APR/2018, THE PATIENT RECEIVED MOST RECENT DOSE OF IV PACLITAXEL.
     Route: 042
     Dates: start: 20180328, end: 20180409
  68. CYCLOPHOSPHAMIDE [Suspect]
     Active Substance: CYCLOPHOSPHAMIDE
     Indication: HER2 positive breast cancer
     Dosage: 2.5 MG, EVERY 0.5 WEEK
     Route: 048
  69. CYCLOPHOSPHAMIDE [Suspect]
     Active Substance: CYCLOPHOSPHAMIDE
     Dosage: 50 MG, QD
     Route: 048
     Dates: start: 20200219, end: 20200309
  70. MYCOSTATIN [Concomitant]
     Active Substance: NYSTATIN
     Dates: start: 20191029, end: 20191104
  71. HYDROMORPHONE HYDROCHLORIDE [Concomitant]
     Active Substance: HYDROMORPHONE HYDROCHLORIDE
     Dates: start: 20200228, end: 20200410
  72. HYDROMORPHONE HYDROCHLORIDE [Concomitant]
     Active Substance: HYDROMORPHONE HYDROCHLORIDE
     Dates: start: 20200228, end: 20200311
  73. HYDROMORPHONE HYDROCHLORIDE [Concomitant]
     Active Substance: HYDROMORPHONE HYDROCHLORIDE
     Dates: start: 20200311, end: 20200410
  74. DEXAMETHASONE [Concomitant]
     Active Substance: DEXAMETHASONE
     Dosage: UNK
     Dates: start: 20190628, end: 20190830
  75. DEXAMETHASONE [Concomitant]
     Active Substance: DEXAMETHASONE
     Dosage: UNK
     Route: 065
     Dates: start: 20190628, end: 20190830
  76. OCTENISEPT (AUSTRIA) [Concomitant]
     Indication: Onycholysis
     Dosage: UNK
     Route: 065
     Dates: start: 20180725
  77. OCTENISEPT (AUSTRIA) [Concomitant]
     Dosage: UNK
     Route: 065
     Dates: start: 20180725
  78. DEXPANTHENOL [Concomitant]
     Active Substance: DEXPANTHENOL
     Indication: Conjunctivitis
     Dosage: UNK
     Route: 065
     Dates: start: 20180725
  79. DEXPANTHENOL [Concomitant]
     Active Substance: DEXPANTHENOL
     Indication: Onycholysis
     Dosage: UNK
     Route: 065
     Dates: start: 20180619
  80. DEXPANTHENOL [Concomitant]
     Active Substance: DEXPANTHENOL
     Dosage: UNK
     Route: 065
     Dates: start: 20180725
  81. DEXPANTHENOL [Concomitant]
     Active Substance: DEXPANTHENOL
     Dosage: UNK
     Route: 065
     Dates: start: 20180619
  82. XGEVA [Concomitant]
     Active Substance: DENOSUMAB
     Dosage: UNK
     Dates: start: 20191219
  83. PANTOPRAZOLE SODIUM [Concomitant]
     Active Substance: PANTOPRAZOLE SODIUM
     Indication: Product used for unknown indication
     Dosage: ONGOING = CHECKED
     Route: 065
     Dates: start: 20191011
  84. DEXPANTHENOL\HYALURONATE SODIUM [Concomitant]
     Active Substance: DEXPANTHENOL\HYALURONATE SODIUM
     Indication: Conjunctivitis
     Dosage: UNK
     Route: 065
     Dates: start: 20180619
  85. KYTRIL [Concomitant]
     Active Substance: GRANISETRON HYDROCHLORIDE
     Indication: Product used for unknown indication
     Dosage: ONGOING = NOT CHECKED
     Route: 065
     Dates: start: 20190628, end: 20190830
  86. LOPERAMIDE HYDROCHLORIDE [Concomitant]
     Active Substance: LOPERAMIDE HYDROCHLORIDE
     Dosage: UNK
     Dates: start: 20200108
  87. CALCIUM CARBONATE\CHOLECALCIFEROL [Concomitant]
     Active Substance: CALCIUM CARBONATE\CHOLECALCIFEROL
     Indication: Product used for unknown indication
     Dosage: ONGOING = CHECKED
     Route: 065
     Dates: start: 20190425
  88. CALCIUM CARBONATE\CHOLECALCIFEROL [Concomitant]
     Active Substance: CALCIUM CARBONATE\CHOLECALCIFEROL
     Dosage: UNK
     Route: 065
     Dates: start: 20190425
  89. CALCIUM CARBONATE\CHOLECALCIFEROL [Concomitant]
     Active Substance: CALCIUM CARBONATE\CHOLECALCIFEROL
     Dosage: ONGOING = CHECKED
     Dates: start: 20190425
  90. ZOFRAN [Concomitant]
     Active Substance: ONDANSETRON HYDROCHLORIDE

REACTIONS (12)
  - Diarrhoea [Recovered/Resolved]
  - Dyspnoea [Recovered/Resolved]
  - Tumour pain [Recovered/Resolved]
  - C-reactive protein increased [Recovered/Resolved]
  - Pain of skin [Recovered/Resolved]
  - Breast cancer metastatic [Recovering/Resolving]
  - Febrile neutropenia [Recovered/Resolved]
  - Stomatitis [Recovered/Resolved]
  - Skin lesion [Recovering/Resolving]
  - Overdose [Unknown]
  - Off label use [Unknown]
  - Intentional product use issue [Unknown]

NARRATIVE: CASE EVENT DATE: 20190920
